FAERS Safety Report 8748503 (Version 2)
Quarter: 2012Q4

REPORT INFORMATION
  Report Type: Report from Study
  Country: US (occurrence: US)
  Receive Date: 20120827
  Receipt Date: 20120901
  Transmission Date: 20130627
  Serious: Yes (Hospitalization)
  Sender: FDA-Public Use
  Company Number: US-TEVA-355407USA

PATIENT
  Age: 71 Year
  Sex: Male
  Weight: 99.88 kg

DRUGS (11)
  1. OGX-011 [Suspect]
     Indication: SALIVARY GLAND CANCER
     Route: 042
     Dates: start: 20120806, end: 20120806
  2. OGX-011 [Suspect]
     Route: 042
     Dates: start: 20120808, end: 20120808
  3. OGX-011 [Suspect]
     Route: 042
     Dates: start: 20120810, end: 20120810
  4. PACLITAXEL [Suspect]
     Indication: SALIVARY GLAND CANCER
  5. CARBOPLATIN [Suspect]
     Indication: SALIVARY GLAND CANCER
  6. DURAGESIC [Concomitant]
     Indication: PAIN
     Dosage: Q 72 hours
     Route: 062
     Dates: start: 201205
  7. OXYCODONE [Concomitant]
     Indication: PAIN
     Dosage: 10/325 mg
     Route: 048
     Dates: start: 2009
  8. ATENOLOL [Concomitant]
     Indication: HYPERTENSION
     Dosage: 25 Milligram Daily;
     Route: 048
     Dates: start: 2006
  9. TAMSULOSIN [Concomitant]
     Indication: BENIGN PROSTATIC HYPERPLASIA
     Route: 048
     Dates: start: 2006
  10. FINASTERIDE [Concomitant]
     Indication: BENIGN PROSTATIC HYPERPLASIA
     Route: 048
     Dates: start: 2006
  11. GABAPENTIN [Concomitant]
     Indication: NEUROPATHY PERIPHERAL
     Dosage: 900 Milligram Daily;
     Route: 048
     Dates: start: 2012

REACTIONS (4)
  - General physical health deterioration [Not Recovered/Not Resolved]
  - Failure to thrive [None]
  - Dizziness [None]
  - Dehydration [None]
